FAERS Safety Report 9690426 (Version 2)
Quarter: 2014Q1

REPORT INFORMATION
  Report Type: Spontaneous
  Country: BR (occurrence: BR)
  Receive Date: 20131115
  Receipt Date: 20140122
  Transmission Date: 20141002
  Serious: Yes (Hospitalization, Disabling)
  Sender: FDA-Public Use
  Company Number: BR-ASTRAZENECA-2013SE82899

PATIENT
  Sex: Female

DRUGS (6)
  1. BRILINTA [Suspect]
     Route: 048
     Dates: start: 201305
  2. LEVOID [Concomitant]
     Indication: HYPOTHYROIDISM
  3. INSULIN [Concomitant]
     Indication: DIABETES MELLITUS
  4. LIPITOR [Concomitant]
     Indication: BLOOD CHOLESTEROL INCREASED
  5. UNSPECIFIED ANTIBIOTIC [Concomitant]
     Indication: URINARY TRACT INFECTION
     Dates: start: 2013
  6. UNKNOWN [Concomitant]
     Indication: HYPOGLYCAEMIA
     Route: 048

REACTIONS (4)
  - Cerebrovascular accident [Recovered/Resolved with Sequelae]
  - Dysphagia [Recovering/Resolving]
  - Hemiplegia [Not Recovered/Not Resolved]
  - Urinary tract infection [Recovered/Resolved]
